FAERS Safety Report 5056181-2 (Version None)
Quarter: 2006Q3

REPORT INFORMATION
  Report Type: 
  Country: None (occurrence: None)
  Receive Date: 20060717
  Receipt Date: 20060706
  Transmission Date: 20061208
  Serious: No
  Sender: FDA-Public Use
  Company Number: DE-2006-018052

PATIENT
  Sex: Male

DRUGS (1)
  1. MAGNEVIST [Suspect]
     Indication: ANGIOGRAM
     Dates: start: 20060705, end: 20060705

REACTIONS (4)
  - CLAUSTROPHOBIA [None]
  - DYSPNOEA [None]
  - MYDRIASIS [None]
  - PULMONARY OEDEMA [None]
